FAERS Safety Report 4368260-3 (Version None)
Quarter: 2004Q2

REPORT INFORMATION
  Report Type: 
  Country: None (occurrence: None)
  Receive Date: 20040527
  Receipt Date: 20040507
  Transmission Date: 20050107
  Serious: Yes (Hospitalization)
  Sender: FDA-Public Use
  Company Number: F01200401039

PATIENT
  Age: 75 Year
  Sex: Male

DRUGS (3)
  1. FONDAPARINUX [Suspect]
     Indication: BONE OPERATION
     Dosage: 2.5 MG
     Route: 058
     Dates: start: 20040308
  2. GLYBURIDE [Concomitant]
  3. ACETAMINOPHEN [Concomitant]

REACTIONS (2)
  - WOUND DEHISCENCE [None]
  - WOUND DRAINAGE [None]
